FAERS Safety Report 13798534 (Version 2)
Quarter: 2017Q3

REPORT INFORMATION
  Report Type: Report from Study
  Country: FR (occurrence: FR)
  Receive Date: 20170727
  Receipt Date: 20170927
  Transmission Date: 20171127
  Serious: Yes (Other)
  Sender: FDA-Public Use
  Company Number: FR-BRISTOL-MYERS SQUIBB COMPANY-BMS-2017-051510

PATIENT
  Age: 66 Year
  Sex: Female
  Weight: 79 kg

DRUGS (3)
  1. EFFICORT LIPOPHILE [Concomitant]
     Indication: RASH
     Dosage: UNK
     Route: 050
     Dates: start: 20170519
  2. EFFICORT LIPOPHILE [Concomitant]
     Indication: RASH MACULO-PAPULAR
     Route: 065
  3. NIVOLUMAB [Suspect]
     Active Substance: NIVOLUMAB
     Indication: METASTATIC RENAL CELL CARCINOMA
     Dosage: 237 MG, UNK
     Route: 042
     Dates: start: 20170215

REACTIONS (4)
  - Rash maculo-papular [Recovered/Resolved]
  - Hypersensitivity [Recovered/Resolved with Sequelae]
  - Pyrexia [Recovered/Resolved]
  - Adverse event [Recovered/Resolved]

NARRATIVE: CASE EVENT DATE: 20170516
